FAERS Safety Report 18126913 (Version 2)
Quarter: 2025Q2

REPORT INFORMATION
  Report Type: Spontaneous
  Country: DE (occurrence: DE)
  Receive Date: 20200810
  Receipt Date: 20250628
  Transmission Date: 20250717
  Serious: Yes (Hospitalization, Other)
  Sender: AUROBINDO
  Company Number: DE-CHEPLA-C20202243_02

PATIENT
  Sex: Female
  Weight: 0.6 kg

DRUGS (8)
  1. HYDROCHLOROTHIAZIDE [Suspect]
     Active Substance: HYDROCHLOROTHIAZIDE
     Indication: Gestational hypertension
     Dosage: 12.5 MILLIGRAM, TWO TIMES A DAY
     Route: 064
  2. URAPIDIL [Suspect]
     Active Substance: URAPIDIL
     Indication: Gestational hypertension
     Route: 064
  3. HYDRALAZINE [Suspect]
     Active Substance: HYDRALAZINE HYDROCHLORIDE
     Indication: Gestational hypertension
     Dosage: 25 MILLIGRAM, 3 TIMES A DAY
     Route: 064
  4. METYRAPONE [Suspect]
     Active Substance: METYRAPONE
     Indication: Cushing^s syndrome
     Dosage: 2.5 GRAM, ONCE A DAY,DAILY AT 25 0/7 WEEKS
     Route: 064
  5. SPIRONOLACTONE [Suspect]
     Active Substance: SPIRONOLACTONE
     Indication: Primary hyperaldosteronism
     Dosage: 100 MILLIGRAM, TWO TIMES A DAY,AT 25 0/7 WEEKS
     Route: 064
  6. NIFEDIPINE [Suspect]
     Active Substance: NIFEDIPINE
     Indication: Gestational hypertension
     Dosage: 20 MG TWO TIMES DAILY (BID)
     Route: 064
  7. METHYLDOPA [Suspect]
     Active Substance: METHYLDOPA
     Indication: Gestational hypertension
     Dosage: 2000 MILLIGRAM, ONCE A DAY,MAXIMIZED AT 2000 MG DAILY
     Route: 064
  8. METOPROLOL [Suspect]
     Active Substance: METOPROLOL
     Indication: Gestational hypertension
     Dosage: 95 MG TWO TIMES DAILY (BID)
     Route: 064

REACTIONS (6)
  - Ultrasound uterus abnormal [Recovered/Resolved]
  - Neonatal hyponatraemia [Recovered/Resolved]
  - Hypoglycaemia neonatal [Recovered/Resolved]
  - Cortisol increased [Recovered/Resolved]
  - Premature baby [Recovered/Resolved]
  - Foetal exposure during pregnancy [Recovered/Resolved]
